FAERS Safety Report 11159616 (Version 1)
Quarter: 2015Q2

REPORT INFORMATION
  Report Type: Spontaneous
  Country: US (occurrence: US)
  Receive Date: 20150603
  Receipt Date: 20150603
  Transmission Date: 20150821
  Serious: No
  Sender: FDA-Public Use
  Company Number: US-ABBVIE-14P-163-1251843-00

PATIENT
  Sex: Male

DRUGS (2)
  1. MARINOL [Suspect]
     Active Substance: DRONABINOL
     Indication: DYSKINESIA
     Dosage: 1 CAPSULE 2 TIMES DAILY
     Route: 048
     Dates: end: 201406
  2. MARINOL [Suspect]
     Active Substance: DRONABINOL
     Dosage: 1 CAPSULE 3 TIMES DAILY
     Route: 048
     Dates: start: 201406

REACTIONS (4)
  - Off label use [Not Recovered/Not Resolved]
  - Therapeutic response unexpected [Not Recovered/Not Resolved]
  - Drug prescribing error [Not Recovered/Not Resolved]
  - Choreoathetosis [Not Recovered/Not Resolved]
